FAERS Safety Report 15430806 (Version 3)
Quarter: 2018Q4

REPORT INFORMATION
  Report Type: Spontaneous
  Country: IT (occurrence: IT)
  Receive Date: 20180926
  Receipt Date: 20181025
  Transmission Date: 20190204
  Serious: Yes (Hospitalization, Other)
  Sender: FDA-Public Use
  Company Number: IT-BIOMARINAP-IT-2018-120006

PATIENT
  Age: 6 Year
  Sex: Male

DRUGS (3)
  1. METOPROLOL. [Concomitant]
     Active Substance: METOPROLOL
     Indication: CARDIAC DISORDER
     Dosage: UNK
     Dates: start: 201807
  2. ALDURAZYME [Suspect]
     Active Substance: LARONIDASE
     Indication: PRODUCT USED FOR UNKNOWN INDICATION
     Dosage: UNK
     Route: 041
     Dates: start: 20140710
  3. LASIX [Concomitant]
     Active Substance: FUROSEMIDE
     Indication: POLYURIA
     Dosage: UNK
     Dates: start: 201806

REACTIONS (5)
  - Hospitalisation [Unknown]
  - Ear pain [Not Recovered/Not Resolved]
  - Cough [Not Recovered/Not Resolved]
  - Ear infection [Unknown]
  - Pyrexia [Not Recovered/Not Resolved]

NARRATIVE: CASE EVENT DATE: 20180915
